FAERS Safety Report 8227970-8 (Version None)
Quarter: 2012Q1

REPORT INFORMATION
  Report Type: 
  Country: None (occurrence: None)
  Receive Date: 20120322
  Receipt Date: 20120319
  Transmission Date: 20120608
  Serious: Yes (Death, Other)
  Sender: FDA-Public Use
  Company Number: PHHY2012CH024182

PATIENT
  Age: 74 Year
  Sex: Male

DRUGS (10)
  1. CALCIMAGON [Concomitant]
     Dosage: 2 DF, QD
     Route: 048
  2. ASPIRIN [Concomitant]
     Dosage: 100 MG, QD
     Route: 048
  3. CLARITHROMYCIN [Concomitant]
     Dosage: 500 MG, BID
     Route: 048
  4. SYMBICORT [Concomitant]
     Dosage: 1 DF, UNK
     Route: 055
  5. METHOTREXATE [Suspect]
     Indication: PSORIATIC ARTHROPATHY
     Dosage: 15 MG, QW
     Route: 058
     Dates: start: 20110809, end: 20120124
  6. OMEPRAZOLE [Concomitant]
     Dosage: 20 MG, QD
     Route: 048
  7. LEVOTHYROXINE SODIUM [Concomitant]
     Dosage: 100 UG, QD
     Route: 048
  8. FOLIC ACID [Concomitant]
     Dosage: 5 MG, QD
     Route: 048
     Dates: start: 20110809, end: 20120124
  9. TRAMADOL HCL [Concomitant]
     Indication: BACK PAIN
     Dosage: 75 MG, BID
     Route: 048
  10. IRBESARTAN [Concomitant]
     Indication: ESSENTIAL HYPERTENSION
     Dosage: 1 DF, QD
     Route: 048

REACTIONS (8)
  - DEATH [None]
  - DYSPNOEA [None]
  - INTERSTITIAL LUNG DISEASE [None]
  - OXYGEN SATURATION DECREASED [None]
  - PULMONARY FUNCTION TEST DECREASED [None]
  - NEUTROPHIL COUNT INCREASED [None]
  - RESPIRATORY DISORDER [None]
  - COUGH [None]
